FAERS Safety Report 9065001 (Version 1)
Quarter: 2013Q1

REPORT INFORMATION
  Report Type: Report from Study
  Country: ES (occurrence: ES)
  Receive Date: 20130206
  Receipt Date: 20130206
  Transmission Date: 20140127
  Serious: Yes (Other)
  Sender: FDA-Public Use
  Company Number: ES-ROCHE-1185017

PATIENT
  Sex: 0

DRUGS (3)
  1. BEVACIZUMAB [Suspect]
     Indication: MALIGNANT GLIOMA
     Route: 065
  2. IRINOTECAN [Suspect]
     Indication: MALIGNANT GLIOMA
     Route: 065
  3. DEXAMETHASONE [Concomitant]
     Dosage: MEDIAN DOSAGE: 34 MG
     Route: 065

REACTIONS (7)
  - Asthenia [Unknown]
  - Thrombocytopenia [Unknown]
  - Neutropenia [Unknown]
  - Mucosal inflammation [Unknown]
  - Embolism [Unknown]
  - Central nervous system haemorrhage [Unknown]
  - Cognitive disorder [Unknown]
